FAERS Safety Report 6582263-X (Version None)
Quarter: 2010Q1

REPORT INFORMATION
  Report Type: 
  Country: None (occurrence: None)
  Receive Date: 20100216
  Receipt Date: 20091109
  Transmission Date: 20100710
  Serious: No
  Sender: FDA-Public Use
  Company Number: A0816067A

PATIENT
  Age: 63 Year
  Sex: Female

DRUGS (7)
  1. VERAMYST [Suspect]
     Route: 045
     Dates: start: 20070101, end: 20091108
  2. LIPITOR [Concomitant]
  3. LOVAZA [Concomitant]
  4. ZESTRIL [Concomitant]
  5. NEXIUM [Concomitant]
  6. ASPIRIN [Concomitant]
  7. VITAMIN D [Concomitant]

REACTIONS (1)
  - ORAL CANDIDIASIS [None]
